FAERS Safety Report 14121144 (Version 1)
Quarter: 2017Q4

REPORT INFORMATION
  Report Type: Spontaneous
  Country: US (occurrence: US)
  Receive Date: 20171024
  Receipt Date: 20171024
  Transmission Date: 20180321
  Serious: No
  Sender: FDA-Public Use
  Company Number: US-PERRIGO-16US022996

PATIENT
  Age: 63 Year
  Sex: Male
  Weight: 95.24 kg

DRUGS (2)
  1. IMIQUIMOD. [Suspect]
     Active Substance: IMIQUIMOD
     Indication: PAPILLOMA VIRAL INFECTION
     Dosage: SMALL APPLICATION, 5 TIMES WEEKLY
     Route: 061
     Dates: start: 201610, end: 2016
  2. IMIQUIMOD. [Suspect]
     Active Substance: IMIQUIMOD
     Indication: CARCINOMA IN SITU
     Dosage: SMALL APPLICATION, 3 TIMES WEEKLY
     Route: 061
     Dates: start: 201612

REACTIONS (5)
  - Application site irritation [Not Recovered/Not Resolved]
  - Application site erosion [Not Recovered/Not Resolved]
  - Application site erythema [Not Recovered/Not Resolved]
  - Application site oedema [Not Recovered/Not Resolved]
  - Off label use [Not Recovered/Not Resolved]

NARRATIVE: CASE EVENT DATE: 201610
